FAERS Safety Report 15459270 (Version 4)
Quarter: 2019Q1

REPORT INFORMATION
  Report Type: Spontaneous
  Country: CA (occurrence: CA)
  Receive Date: 20181003
  Receipt Date: 20190129
  Transmission Date: 20190417
  Serious: Yes (Death, Hospitalization, Other)
  Sender: FDA-Public Use
  Company Number: CA-CELLTRION INC.-2018CA022779

PATIENT

DRUGS (4)
  1. APO-AZATHIOPRINE [Suspect]
     Active Substance: AZATHIOPRINE
     Indication: COLITIS
     Dosage: UNK
     Route: 065
  2. APO-PREDNISONE [Suspect]
     Active Substance: PREDNISONE
     Indication: STEROID THERAPY
     Dosage: 15 MG EVERY 24 HOURS (15 MG QD)
     Route: 065
  3. MESALAZINE [Suspect]
     Active Substance: MESALAMINE
     Indication: COLITIS
     Dosage: UNK
     Route: 065
  4. INFLIXIMAB PFIZER (UNKNOWN) [Suspect]
     Active Substance: INFLIXIMAB
     Indication: COLITIS
     Dosage: 5 MG/KG, UNK
     Route: 065

REACTIONS (6)
  - Cytomegalovirus colitis [Fatal]
  - Drug ineffective [Fatal]
  - Cytomegalovirus viraemia [Fatal]
  - Drug use disorder [Fatal]
  - Haemophagocytic lymphohistiocytosis [Fatal]
  - Histoplasmosis [Fatal]
